FAERS Safety Report 8620648-8 (Version None)
Quarter: 2012Q3

REPORT INFORMATION
  Report Type: 
  Country: None (occurrence: None)
  Receive Date: 20120824
  Receipt Date: 20120820
  Transmission Date: 20120928
  Serious: Yes (Other)
  Sender: FDA-Public Use
  Company Number: US-ELI_LILLY_AND_COMPANY-US201208006102

PATIENT
  Sex: Male
  Weight: 82.086 kg

DRUGS (4)
  1. CAVERJECT [Concomitant]
     Dosage: 20 UG, UNK
     Dates: start: 20111001
  2. VIAGRA [Concomitant]
     Indication: ERECTILE DYSFUNCTION
  3. TRIAZOLAM [Concomitant]
     Indication: INSOMNIA
     Dosage: UNK, QD
     Route: 048
     Dates: start: 20120101
  4. CIALIS [Suspect]
     Indication: ERECTILE DYSFUNCTION

REACTIONS (4)
  - VISUAL IMPAIRMENT [None]
  - CHEST PAIN [None]
  - DRUG HYPERSENSITIVITY [None]
  - URINARY RETENTION [None]
